FAERS Safety Report 9709738 (Version 2)
Quarter: 2014Q3

REPORT INFORMATION
  Report Type: Report from Study
  Country: DE (occurrence: DE)
  Receive Date: 20131126
  Receipt Date: 20140825
  Transmission Date: 20150326
  Serious: Yes (Hospitalization)
  Sender: FDA-Public Use
  Company Number: DE-ROCHE-1307270

PATIENT
  Age: 71 Year
  Sex: Male
  Weight: 76 kg

DRUGS (5)
  1. LOPERAMID [Concomitant]
     Active Substance: LOPERAMIDE
     Indication: DIARRHOEA
     Route: 065
     Dates: start: 20130207, end: 20130325
  2. BEVACIZUMAB [Suspect]
     Active Substance: BEVACIZUMAB
     Indication: COLORECTAL CANCER METASTATIC
     Dosage: LAST DOSE PRIOR TO SAE ON 11/JUL/2013
     Route: 042
     Dates: start: 20121213
  3. VERGENTAN [Concomitant]
     Indication: VOMITING
     Route: 042
     Dates: start: 20130718
  4. 5-FLUOROURACIL [Concomitant]
     Active Substance: FLUOROURACIL
     Indication: CHEMOTHERAPY
     Route: 042
     Dates: start: 20121213, end: 20130718
  5. FOLINIC ACID [Concomitant]
     Active Substance: LEUCOVORIN
     Indication: CHEMOTHERAPY
     Route: 042
     Dates: start: 20121213, end: 20130718

REACTIONS (2)
  - Craniocerebral injury [Recovered/Resolved]
  - Fall [Recovered/Resolved]

NARRATIVE: CASE EVENT DATE: 20130719
